FAERS Safety Report 24676468 (Version 2)
Quarter: 2025Q1

REPORT INFORMATION
  Report Type: Spontaneous
  Country: US (occurrence: US)
  Receive Date: 20241128
  Receipt Date: 20250115
  Transmission Date: 20250408
  Serious: No
  Sender: SANOFI AVENTIS
  Company Number: US-SA-2024SA346452

PATIENT
  Age: 18 Year
  Sex: Female
  Weight: 84.91 kg

DRUGS (7)
  1. DUPIXENT [Suspect]
     Active Substance: DUPILUMAB
     Indication: Dermatitis atopic
     Dosage: 300 MG QOW
     Route: 058
     Dates: start: 20241101
  2. BENADRYL [Concomitant]
     Active Substance: DIPHENHYDRAMINE HYDROCHLORIDE
  3. ZYRTEC [Concomitant]
     Active Substance: CETIRIZINE HYDROCHLORIDE
  4. VRAYLAR [Concomitant]
     Active Substance: CARIPRAZINE
  5. SLYND [Concomitant]
     Active Substance: DROSPIRENONE
  6. LAMOTRIGINE [Concomitant]
     Active Substance: LAMOTRIGINE
  7. ONDANSETRON [Concomitant]
     Active Substance: ONDANSETRON

REACTIONS (9)
  - Lymphadenopathy [Unknown]
  - Pyrexia [Unknown]
  - Facial pain [Unknown]
  - Rash pruritic [Not Recovered/Not Resolved]
  - Hyperhidrosis [Not Recovered/Not Resolved]
  - Skin fissures [Not Recovered/Not Resolved]
  - Dry eye [Not Recovered/Not Resolved]
  - Injection site swelling [Not Recovered/Not Resolved]
  - Injection site pain [Not Recovered/Not Resolved]

NARRATIVE: CASE EVENT DATE: 20241117
